FAERS Safety Report 6192644-4 (Version None)
Quarter: 2009Q2

REPORT INFORMATION
  Report Type: 
  Country: None (occurrence: None)
  Receive Date: 20090518
  Receipt Date: 20090422
  Transmission Date: 20091009
  Serious: No
  Sender: FDA-Public Use
  Company Number: US-JNJFOC-20090406156

PATIENT

DRUGS (1)
  1. INVEGA [Suspect]
     Indication: HALLUCINATION, AUDITORY
     Route: 048

REACTIONS (1)
  - DRUG INEFFECTIVE [None]
